FAERS Safety Report 20619149 (Version 1)
Quarter: 2022Q1

REPORT INFORMATION
  Report Type: Spontaneous
  Country: US (occurrence: US)
  Receive Date: 20220322
  Receipt Date: 20220322
  Transmission Date: 20220423
  Serious: Yes (Other)
  Sender: FDA-Public Use
  Company Number: US-ESPERIONTHERAPEUTICS-2022USA00598

PATIENT
  Sex: Male

DRUGS (1)
  1. NEXLETOL [Suspect]
     Active Substance: BEMPEDOIC ACID
     Indication: Product used for unknown indication
     Dosage: 180 MILLIGRAM, QD
     Route: 048

REACTIONS (1)
  - Myocardial infarction [Unknown]
